FAERS Safety Report 5006547-1 (Version None)
Quarter: 2006Q2

REPORT INFORMATION
  Report Type: 
  Country: None (occurrence: None)
  Receive Date: 20060516
  Receipt Date: 20060502
  Transmission Date: 20061013
  Serious: Yes (Hospitalization)
  Sender: FDA-Public Use
  Company Number: PAR_0626_2006

PATIENT
  Age: 57 Year
  Sex: Male

DRUGS (3)
  1. VERAPAMIL EXTENDED-RELEASE [Suspect]
     Indication: SUPRAVENTRICULAR TACHYCARDIA
     Dosage: 240 MG QD
  2. CALCIUM CARBONATE [Concomitant]
  3. EPOGEN [Concomitant]

REACTIONS (4)
  - ARRHYTHMIA SUPRAVENTRICULAR [None]
  - ATRIOVENTRICULAR BLOCK THIRD DEGREE [None]
  - HYPERKALAEMIA [None]
  - SYNCOPE [None]
